FAERS Safety Report 16068886 (Version 2)
Quarter: 2019Q2

REPORT INFORMATION
  Report Type: Spontaneous
  Country: NL (occurrence: NL)
  Receive Date: 20190313
  Receipt Date: 20190403
  Transmission Date: 20190711
  Serious: Yes (Hospitalization, Other)
  Sender: FDA-Public Use
  Company Number: PHHY2019NL056648

PATIENT
  Age: 11 Year
  Sex: Female

DRUGS (3)
  1. HUMIRA [Interacting]
     Active Substance: ADALIMUMAB
     Indication: JUVENILE IDIOPATHIC ARTHRITIS
     Dosage: 40 MG, Q2W
     Route: 058
     Dates: start: 20181107, end: 20190115
  2. METHOTREXATE. [Suspect]
     Active Substance: METHOTREXATE
     Indication: PRODUCT USED FOR UNKNOWN INDICATION
     Dosage: UNK
     Route: 065
  3. METHOTREXATE. [Interacting]
     Active Substance: METHOTREXATE
     Dosage: 10 MG, QW
     Route: 048
     Dates: start: 201810, end: 201902

REACTIONS (9)
  - Inflammation [Unknown]
  - Joint abscess [Recovered/Resolved]
  - Arthritis [Recovering/Resolving]
  - Drug interaction [Unknown]
  - Cellulitis [Recovered/Resolved]
  - Cellulitis [Recovered/Resolved]
  - Skin infection [Unknown]
  - Joint abscess [Recovered/Resolved]
  - Injection site infection [Unknown]

NARRATIVE: CASE EVENT DATE: 20181207
